FAERS Safety Report 25816551 (Version 3)
Quarter: 2025Q4

REPORT INFORMATION
  Report Type: Spontaneous
  Country: US (occurrence: US)
  Receive Date: 20250918
  Receipt Date: 20251119
  Transmission Date: 20260118
  Serious: Yes (Hospitalization, Other)
  Sender: CATALYST PHARMA
  Company Number: US-CATALYST PHARMACEUTICALS, INC-US-CATA-25-01249

PATIENT
  Sex: Male
  Weight: 91.61 kg

DRUGS (24)
  1. FIRDAPSE [Suspect]
     Active Substance: AMIFAMPRIDINE PHOSPHATE
     Indication: Myasthenic syndrome
     Dosage: ONE 10 MG TABLET IN 10 ML OF WATER, TAKING 5 ML THREE TIMES A DAY, TITRATED UP TO THE 30 ML DOSE
     Dates: start: 20250527, end: 2025
  2. FIRDAPSE [Suspect]
     Active Substance: AMIFAMPRIDINE PHOSPHATE
     Dosage: DISSOLVE ONE (10 MG) TABLET 10 ML OF WATER AND TAKE VIA G-TUBE FOUR TIMES A DAY
     Dates: start: 20250620, end: 2025
  3. FIRDAPSE [Suspect]
     Active Substance: AMIFAMPRIDINE PHOSPHATE
     Dosage: DISSOLVES THREE 10 MG TABLETS IN 30 ML OF WATER AND TAKES 10 ML OF THAT SUSPENSION THREE TIMES A DAY
     Dates: start: 20250625
  4. FIRDAPSE [Suspect]
     Active Substance: AMIFAMPRIDINE PHOSPHATE
     Dosage: DISSOLVE 10MG IN 10ML OF WATER AND TAKE 10ML VIA G-TUBE FOUR TIMES A  DAY
     Dates: start: 20250917
  5. ALBUTEROL SULFATE [Concomitant]
     Active Substance: ALBUTEROL SULFATE
     Indication: Dyspnoea
     Dosage: INHALATION SOLUTION 25 MG/0.5 ML INHALES TWICE A DAY
     Route: 055
  6. ASPIRIN [Concomitant]
     Active Substance: ASPIRIN
     Indication: Thrombosis prophylaxis
     Dosage: 81 MG BY A PEG TUBE ONE DAILY
  7. BUDESONIDE [Concomitant]
     Active Substance: BUDESONIDE
     Indication: Dyspnoea
     Dosage: INHALATION SUSPENSION 0.5 MG/2 ML TWICE DAILY
     Route: 055
  8. CLARITIN [Concomitant]
     Active Substance: LORATADINE
     Indication: Hypersensitivity
     Dosage: 10 MG BY A PEG TUBE ONE DAILY
  9. ELIQUIS [Concomitant]
     Active Substance: APIXABAN
     Indication: Thrombosis prophylaxis
     Dosage: 5 MG TWICE DAILY BY A PEG TUBE
  10. FAMOTIDINE [Concomitant]
     Active Substance: FAMOTIDINE
     Indication: Gastrooesophageal reflux disease
     Dosage: 20 MG BY A PEG TUBE ONE TWICE A DAY
  11. FLONASE ALLERGY RELIEF [Concomitant]
     Active Substance: FLUTICASONE PROPIONATE
     Indication: Hypersensitivity
     Dosage: 50 MCG ONE NASAL SPRAY AS NEEDED
     Route: 045
  12. MECLIZINE [Concomitant]
     Active Substance: MECLIZINE HYDROCHLORIDE
     Indication: Dizziness
     Dosage: 12.5 MG TABLET AS NEEDED
     Route: 065
  13. MESTINON [Concomitant]
     Active Substance: PYRIDOSTIGMINE BROMIDE
     Indication: Myasthenic syndrome
     Dosage: 60 MG 1 TWICE A DAY BY A PEG TUBE
  14. MESTINON [Concomitant]
     Active Substance: PYRIDOSTIGMINE BROMIDE
     Indication: Myasthenic syndrome
     Dosage: 60 MG/5 ML 45 MG DAILY VIA PEG
  15. MIDODRINE [Concomitant]
     Active Substance: MIDODRINE
     Indication: Hypotension
     Dosage: 2.5 MG TABLET ONE AS NEEDED
     Route: 065
  16. MIRALAX [Concomitant]
     Active Substance: POLYETHYLENE GLYCOL 3350
     Indication: Constipation
     Dosage: 17 G PER SCOOP VIA PEG TUBE AS NEEDED
  17. MYCOPHENOLIC ACID [Concomitant]
     Active Substance: MYCOPHENOLIC ACID
     Indication: Myasthenic syndrome
     Dosage: ORAL SUSPENSION 5 ML BY A PEG TUBE TWICE A DAY
  18. TYLENOL [Concomitant]
     Active Substance: ACETAMINOPHEN
     Indication: Pain
     Dosage: 325 MG VIA PEG TUBE AS NEEDED
  19. ZETIA [Concomitant]
     Active Substance: EZETIMIBE
     Indication: Dyslipidaemia
     Dosage: 10 MG ONE DAILY BY PEG TUBE
  20. MUCINEX DM [Concomitant]
     Active Substance: DEXTROMETHORPHAN HYDROBROMIDE\GUAIFENESIN
     Indication: Secretion discharge
     Dosage: 30-600MG
     Route: 065
  21. OSMOLITE [Concomitant]
     Indication: Nutritional supplementation
     Dosage: UNK, UNK
     Route: 065
  22. PROSOURCE PROTEIN [Concomitant]
     Indication: Nutritional supplementation
     Dosage: UNK, UNK
     Route: 065
  23. SIMETHICONE (DIMETHICONE) [Concomitant]
     Active Substance: DIMETHICONE
     Indication: Flatulence
     Dosage: 80 MG
     Route: 065
  24. SODIUM CHLORIDE [Concomitant]
     Active Substance: SODIUM CHLORIDE
     Indication: Hyponatraemia
     Dosage: 1 G
     Route: 065

REACTIONS (9)
  - Sepsis [Not Recovered/Not Resolved]
  - Deep vein thrombosis [Not Recovered/Not Resolved]
  - Pneumonia aspiration [Recovered/Resolved]
  - Haemoglobin decreased [Not Recovered/Not Resolved]
  - Sleep apnoea syndrome [Not Recovered/Not Resolved]
  - Vision blurred [Not Recovered/Not Resolved]
  - Diarrhoea [Unknown]
  - Rash [Unknown]
  - Migraine [Unknown]

NARRATIVE: CASE EVENT DATE: 20250101
